FAERS Safety Report 9285795 (Version 1)
Quarter: 2013Q2

REPORT INFORMATION
  Report Type: Spontaneous
  Country: CH (occurrence: CH)
  Receive Date: 20130513
  Receipt Date: 20130513
  Transmission Date: 20140414
  Serious: Yes (Other)
  Sender: FDA-Public Use
  Company Number: CH-PFIZER INC-2013145810

PATIENT
  Age: 39 Year
  Sex: Female

DRUGS (3)
  1. LYRICA [Suspect]
     Indication: GUILLAIN-BARRE SYNDROME
     Dosage: 75 MG, 5X/DAY
  2. LYRICA [Suspect]
     Dosage: 75 MG 3X/DAY
  3. ANAFRANIL [Suspect]
     Indication: GUILLAIN-BARRE SYNDROME
     Dosage: 75 MG DAILY
     Route: 064
     Dates: start: 2012, end: 20121210

REACTIONS (1)
  - Abortion missed [Unknown]
